FAERS Safety Report 6678872-X (Version None)
Quarter: 2010Q2

REPORT INFORMATION
  Report Type: 
  Country: None (occurrence: None)
  Receive Date: 20100413
  Receipt Date: 20100409
  Transmission Date: 20101027
  Serious: Yes (Other)
  Sender: FDA-Public Use
  Company Number: US-BRISTOL-MYERS SQUIBB COMPANY-14991954

PATIENT
  Age: 81 Year
  Sex: Male

DRUGS (15)
  1. COUMADIN [Suspect]
     Indication: BENIGN PROSTATIC HYPERPLASIA
     Route: 048
     Dates: start: 20090801
  2. COUMADIN [Suspect]
     Indication: HYPERTONIC BLADDER
     Route: 048
     Dates: start: 20090801
  3. TOVIAZ [Suspect]
  4. LYRICA [Concomitant]
     Dosage: 1DF=75(UNITS NOT SPECIFIED);AM
  5. AMARYL [Concomitant]
     Dosage: 1/2TAB;AM
  6. JANUVIA [Concomitant]
  7. BYSTOLIC [Concomitant]
  8. MICARDIS [Concomitant]
     Dosage: AM
  9. AVODART [Concomitant]
     Dosage: PM
  10. NEXIUM [Concomitant]
     Dosage: PM
  11. VYTORIN [Concomitant]
     Dosage: 1DF=10/40(UNITS NOT SPECIFIED);PM
  12. UROXATRAL [Concomitant]
     Dosage: PM
  13. SINGULAIR [Concomitant]
     Dosage: PM
  14. ASPIRIN [Concomitant]
     Dosage: PM
  15. LUNESTA [Concomitant]
     Dosage: AT BED TIME

REACTIONS (6)
  - CHEST DISCOMFORT [None]
  - CHEST PAIN [None]
  - HEART RATE IRREGULAR [None]
  - HYPERLIPIDAEMIA [None]
  - HYPERTENSION [None]
  - OVERWEIGHT [None]
